FAERS Safety Report 21871168 (Version 1)
Quarter: 2023Q1

REPORT INFORMATION
  Report Type: Spontaneous
  Country: JP (occurrence: JP)
  Receive Date: 20230117
  Receipt Date: 20230117
  Transmission Date: 20230417
  Serious: Yes (Hospitalization, Other)
  Sender: FDA-Public Use
  Company Number: JP-PFIZER INC-PV202300005996

PATIENT
  Age: 75 Year
  Sex: Female

DRUGS (1)
  1. METHOTREXATE SODIUM [Suspect]
     Active Substance: METHOTREXATE SODIUM
     Indication: Rheumatoid arthritis
     Dosage: UNK
     Route: 048
     Dates: start: 200708, end: 202109

REACTIONS (4)
  - Immunodeficiency [Recovered/Resolved]
  - Cytokine storm [Recovered/Resolved]
  - Lymphadenitis viral [Recovered/Resolved]
  - Human herpesvirus 7 infection [Recovered/Resolved]

NARRATIVE: CASE EVENT DATE: 20210901
